FAERS Safety Report 19957780 (Version 2)
Quarter: 2021Q4

REPORT INFORMATION
  Report Type: Spontaneous
  Country: LB (occurrence: LB)
  Receive Date: 20211015
  Receipt Date: 20211105
  Transmission Date: 20220303
  Serious: Yes (Other)
  Sender: FDA-Public Use
  Company Number: FR-STADA-233806

PATIENT
  Age: 42 Year
  Sex: Male

DRUGS (21)
  1. DIAZEPAM [Suspect]
     Active Substance: DIAZEPAM
     Indication: Irritability
     Route: 065
     Dates: start: 2019
  2. DIAZEPAM [Suspect]
     Active Substance: DIAZEPAM
     Indication: Aggression
  3. DIAZEPAM [Suspect]
     Active Substance: DIAZEPAM
     Indication: Psychotic symptom
  4. OLANZAPINE [Suspect]
     Active Substance: OLANZAPINE
     Indication: Irritability
     Route: 065
     Dates: start: 2019, end: 2019
  5. OLANZAPINE [Suspect]
     Active Substance: OLANZAPINE
     Indication: Aggression
     Dosage: DOSE INCREASED
     Route: 065
     Dates: start: 2019, end: 2019
  6. OLANZAPINE [Suspect]
     Active Substance: OLANZAPINE
     Indication: Psychotic symptom
  7. OLANZAPINE [Suspect]
     Active Substance: OLANZAPINE
     Indication: Agitation
  8. HALOPERIDOL [Suspect]
     Active Substance: HALOPERIDOL
     Indication: Agitation
     Dosage: FIRST NIGHT OF HIS ADMISSION
     Route: 030
     Dates: start: 2019, end: 2019
  9. HALOPERIDOL [Suspect]
     Active Substance: HALOPERIDOL
     Dosage: ON THE SECOND DAY OF HIS ADMISSION
     Route: 030
     Dates: start: 2019, end: 2019
  10. HALOPERIDOL [Suspect]
     Active Substance: HALOPERIDOL
     Dosage: ON HOSPITAL DAY 10 AT 4:30 AM
     Route: 030
     Dates: start: 2019, end: 2019
  11. HALOPERIDOL [Suspect]
     Active Substance: HALOPERIDOL
     Dosage: ON HOSPITAL DAY 10 AT 7:00 PM
     Route: 030
     Dates: start: 2019, end: 2019
  12. PROMETHAZINE [Suspect]
     Active Substance: PROMETHAZINE HYDROCHLORIDE
     Indication: Agitation
     Dosage: FIRST NIGHT OF HIS ADMISSION
     Route: 030
     Dates: start: 2019, end: 2019
  13. PROMETHAZINE [Suspect]
     Active Substance: PROMETHAZINE HYDROCHLORIDE
     Dosage: ON THE SECOND DAY OF HIS ADMISSION
     Route: 030
     Dates: start: 2019, end: 2019
  14. PROMETHAZINE [Suspect]
     Active Substance: PROMETHAZINE HYDROCHLORIDE
     Dosage: ON HOSPITAL DAY 10 AT 4:30 AM
     Route: 030
     Dates: start: 2019, end: 2019
  15. PROMETHAZINE [Suspect]
     Active Substance: PROMETHAZINE HYDROCHLORIDE
     Dosage: ON HOSPITAL DAY 10 AT 7:00 PM
     Route: 030
     Dates: start: 2019, end: 2019
  16. CHLORPROMAZINE [Suspect]
     Active Substance: CHLORPROMAZINE
     Indication: Agitation
     Dosage: FIRST NIGHT OF HIS ADMISSION
     Route: 030
     Dates: start: 2019, end: 2019
  17. CHLORPROMAZINE [Suspect]
     Active Substance: CHLORPROMAZINE
     Dosage: ON THE SECOND DAY OF HIS ADMISSION
     Route: 030
     Dates: start: 2019, end: 2019
  18. CHLORPROMAZINE [Suspect]
     Active Substance: CHLORPROMAZINE
     Dosage: ON HOSPITAL DAY 10 AT 4:30 AM
     Route: 030
     Dates: start: 2019, end: 2019
  19. CHLORPROMAZINE [Suspect]
     Active Substance: CHLORPROMAZINE
     Dosage: ON HOSPITAL DAY 10 AT 4:00 PM
     Route: 048
     Dates: start: 2019, end: 2019
  20. CHLORPROMAZINE [Suspect]
     Active Substance: CHLORPROMAZINE
     Dosage: ON HOSPITAL DAY 10 AT 7:00 PM
     Route: 030
     Dates: start: 2019, end: 2019
  21. ESCITALOPRAM [Concomitant]
     Active Substance: ESCITALOPRAM OXALATE
     Indication: Depressive symptom
     Dates: start: 2008

REACTIONS (2)
  - Neuroleptic malignant syndrome [Recovering/Resolving]
  - Multiple drug therapy [Unknown]

NARRATIVE: CASE EVENT DATE: 20190101
